FAERS Safety Report 16721762 (Version 2)
Quarter: 2019Q4

REPORT INFORMATION
  Report Type: Spontaneous
  Country: DE (occurrence: DE)
  Receive Date: 20190820
  Receipt Date: 20191002
  Transmission Date: 20200122
  Serious: Yes (Other)
  Sender: FDA-Public Use
  Company Number: DE-ASTRAZENECA-2019SF12114

PATIENT
  Sex: Male
  Weight: 97 kg

DRUGS (8)
  1. SEROQUEL [Suspect]
     Active Substance: QUETIAPINE FUMARATE
     Indication: BIPOLAR DISORDER
     Dosage: 100 MG AT NOON AND 300 MG BEFORE SLEEPING, (QUETIAPIN (MANUFACTURER TAD)
     Route: 048
  2. SEROQUEL [Suspect]
     Active Substance: QUETIAPINE FUMARATE
     Indication: BIPOLAR DISORDER
     Dosage: 1200 MG
     Route: 048
     Dates: start: 200311
  3. SEROQUEL [Suspect]
     Active Substance: QUETIAPINE FUMARATE
     Indication: BIPOLAR DISORDER
     Dosage: HE REDUCED HIS REGULAR TAKEN SEROQUEL DOSAGE BY 100 MG
     Route: 048
  4. LAMICTAL [Concomitant]
     Active Substance: LAMOTRIGINE
     Dates: start: 200601
  5. SEROQUEL [Suspect]
     Active Substance: QUETIAPINE FUMARATE
     Indication: BIPOLAR DISORDER
     Dosage: DOSAGE INCREASE UP TO 600 MG OVER THE WEEKEND, POSSIBLY IN HOLIDAYS
     Route: 048
  6. DIPIPERON [Concomitant]
     Active Substance: PIPAMPERONE
     Dosage: 40 MG,UNKNOWN
  7. SEROQUEL [Suspect]
     Active Substance: QUETIAPINE FUMARATE
     Indication: BIPOLAR DISORDER
     Dosage: 100 MG AT NOON AND 300 MG BEFORE SLEEPING
     Route: 048
     Dates: start: 2001
  8. SEROQUEL [Suspect]
     Active Substance: QUETIAPINE FUMARATE
     Indication: BIPOLAR DISORDER
     Dosage: 2000 MG PER DAY
     Route: 048
     Dates: start: 20020524

REACTIONS (32)
  - Blood bilirubin increased [Unknown]
  - Indifference [Unknown]
  - Depression [Unknown]
  - Restlessness [Not Recovered/Not Resolved]
  - Depressed mood [Not Recovered/Not Resolved]
  - Intentional product misuse [Unknown]
  - Electrocardiogram QT prolonged [Unknown]
  - Blood creatinine increased [Not Recovered/Not Resolved]
  - Suicidal ideation [Not Recovered/Not Resolved]
  - Disturbance in attention [Unknown]
  - Sleep disorder [Unknown]
  - Pain in extremity [Not Recovered/Not Resolved]
  - Tachycardia [Not Recovered/Not Resolved]
  - Protein total increased [Unknown]
  - Specific gravity urine abnormal [Unknown]
  - Anxiety [Not Recovered/Not Resolved]
  - Blood creatine phosphokinase increased [Unknown]
  - Overdose [Unknown]
  - Feeling of despair [Not Recovered/Not Resolved]
  - Vitamin B12 increased [Not Recovered/Not Resolved]
  - Tension [Not Recovered/Not Resolved]
  - Fatigue [Not Recovered/Not Resolved]
  - Pain in extremity [Unknown]
  - Mental disorder [Unknown]
  - Myosclerosis [Unknown]
  - Off label use [Unknown]
  - Psychomotor skills impaired [Not Recovered/Not Resolved]
  - Lethargy [Unknown]
  - Self-injurious ideation [Not Recovered/Not Resolved]
  - Hallucination, auditory [Unknown]
  - Thinking abnormal [Unknown]
  - Asthenia [Unknown]
